FAERS Safety Report 25309664 (Version 1)
Quarter: 2025Q2

REPORT INFORMATION
  Report Type: Spontaneous
  Country: US (occurrence: US)
  Receive Date: 20250513
  Receipt Date: 20250513
  Transmission Date: 20250717
  Serious: No
  Sender: SANOFI AVENTIS
  Company Number: US-SA-2025SA135565

PATIENT
  Sex: Female

DRUGS (22)
  1. DUPIXENT [Suspect]
     Active Substance: DUPILUMAB
     Indication: Asthma
     Dosage: 300 MG, QOW
     Route: 058
     Dates: start: 20200616
  2. ALBUTEROL [Concomitant]
     Active Substance: ALBUTEROL
  3. ALVESCO [Concomitant]
     Active Substance: CICLESONIDE
  4. AZITHROMYCIN [Concomitant]
     Active Substance: AZITHROMYCIN
  5. BREO ELLIPTA [Concomitant]
     Active Substance: FLUTICASONE FUROATE\VILANTEROL TRIFENATATE
     Route: 055
  6. CYCLOBENZAPRINE [Concomitant]
     Active Substance: CYCLOBENZAPRINE
  7. DILTIAZEM [Concomitant]
     Active Substance: DILTIAZEM
  8. EPINEPHRINE [Concomitant]
     Active Substance: EPINEPHRINE
  9. ESOMEPRAZOLE MAGNESIUM [Concomitant]
     Active Substance: ESOMEPRAZOLE MAGNESIUM
  10. FLUOROMETHOLONE [Concomitant]
     Active Substance: FLUOROMETHOLONE
  11. LEVALBUTEROL [Concomitant]
     Active Substance: LEVALBUTEROL
  12. LOSARTAN POTASSIUM [Concomitant]
     Active Substance: LOSARTAN POTASSIUM
  13. MONTELUKAST [Concomitant]
     Active Substance: MONTELUKAST
  14. NAPROXEN [Concomitant]
     Active Substance: NAPROXEN
  15. OMEPRAZOLE [Concomitant]
     Active Substance: OMEPRAZOLE
  16. ONDANSETRON [Concomitant]
     Active Substance: ONDANSETRON
  17. PREDNISONE [Concomitant]
     Active Substance: PREDNISONE
  18. PREDNISONE [Concomitant]
     Active Substance: PREDNISONE
  19. PREDNISONE [Concomitant]
     Active Substance: PREDNISONE
  20. PREDNISONE [Concomitant]
     Active Substance: PREDNISONE
  21. SPIRONOLACTONE [Concomitant]
     Active Substance: SPIRONOLACTONE
  22. XHANCE [Concomitant]
     Active Substance: FLUTICASONE PROPIONATE

REACTIONS (1)
  - Oral herpes [Unknown]
